FAERS Safety Report 7525538-X (Version None)
Quarter: 2011Q2

REPORT INFORMATION
  Report Type: 
  Country: None (occurrence: None)
  Receive Date: 20110606
  Receipt Date: 20110528
  Transmission Date: 20111010
  Serious: Yes (Death)
  Sender: FDA-Public Use
  Company Number: PL-GENZYME-CLOF-1001605

PATIENT
  Sex: Female
  Weight: 80 kg

DRUGS (5)
  1. EVOLTRA [Suspect]
     Indication: ACUTE MYELOID LEUKAEMIA
     Dosage: 76 MG, QD DAYS 1-5
     Route: 065
     Dates: start: 20110422, end: 20110426
  2. ACETAMINOPHEN [Concomitant]
     Indication: PYREXIA
     Dosage: 2 X 1 TABLET
     Route: 048
     Dates: start: 20110419, end: 20110427
  3. KALIPOZ [Concomitant]
     Indication: HYPERKALAEMIA
     Dosage: 3 X 2 TABLETS
     Dates: start: 20110419, end: 20110427
  4. MST [Concomitant]
     Indication: ANALGESIC THERAPY
     Dosage: 2 X 1 TABLET
     Route: 048
     Dates: start: 20110419, end: 20110427
  5. MILURIT [Concomitant]
     Indication: BLOOD URIC ACID INCREASED
     Dosage: 300 MG, UNK
     Dates: start: 20110419, end: 20110427

REACTIONS (1)
  - TOXIC EPIDERMAL NECROLYSIS [None]
